FAERS Safety Report 10550940 (Version 1)
Quarter: 2014Q4

REPORT INFORMATION
  Report Type: Spontaneous
  Country: US (occurrence: None)
  Receive Date: 20141028
  Receipt Date: 20141028
  Transmission Date: 20150529
  Serious: Yes (Other)
  Sender: FDA-Public Use
  Company Number: None

PATIENT
  Age: 17 Year
  Sex: Female
  Weight: 50.8 kg

DRUGS (1)
  1. ZOLOFT [Suspect]
     Active Substance: SERTRALINE HYDROCHLORIDE
     Indication: DEPRESSION
     Dosage: 1/2 TAB ONCE DAILY TAKEN BY MOUTH
     Route: 048
     Dates: start: 20141023, end: 20141024

REACTIONS (8)
  - Abdominal pain upper [None]
  - Nausea [None]
  - Vomiting [None]
  - Feeling abnormal [None]
  - Blepharospasm [None]
  - Tremor [None]
  - Tic [None]
  - Chills [None]

NARRATIVE: CASE EVENT DATE: 20141024
